FAERS Safety Report 6636444-7 (Version None)
Quarter: 2010Q1

REPORT INFORMATION
  Report Type: 
  Country: None (occurrence: None)
  Receive Date: 20100316
  Receipt Date: 20100302
  Transmission Date: 20100710
  Serious: Yes (Other)
  Sender: FDA-Public Use
  Company Number: DE-GENENTECH-299214

PATIENT
  Sex: Female

DRUGS (4)
  1. MABTHERA [Suspect]
     Indication: DRUG USE FOR UNKNOWN INDICATION
     Dosage: UNK
     Route: 065
     Dates: start: 20081106
  2. HUMIRA [Concomitant]
     Indication: DRUG USE FOR UNKNOWN INDICATION
     Dosage: UNK
     Dates: start: 20080904, end: 20090118
  3. DECORTIN [Concomitant]
     Indication: DRUG USE FOR UNKNOWN INDICATION
     Dosage: UNK
  4. ARCOXIA [Concomitant]
     Indication: DRUG USE FOR UNKNOWN INDICATION
     Dosage: UNK

REACTIONS (4)
  - BLOOD PRESSURE INCREASED [None]
  - LABORATORY TEST ABNORMAL [None]
  - LOSS OF CONSCIOUSNESS [None]
  - NAUSEA [None]
